FAERS Safety Report 10884454 (Version 2)
Quarter: 2015Q1

REPORT INFORMATION
  Report Type: Spontaneous
  Country: IT (occurrence: None)
  Receive Date: 20150227
  Receipt Date: 20150324
  Transmission Date: 20150721
  Serious: Yes (Life-Threatening, Hospitalization)
  Sender: FDA-Public Use
  Company Number: 2751999

PATIENT
  Age: 69 Year
  Sex: Male

DRUGS (2)
  1. GEMCITABINE [Concomitant]
     Active Substance: GEMCITABINE\GEMCITABINE HYDROCHLORIDE
  2. OXALIPLATIN. [Suspect]
     Active Substance: OXALIPLATIN
     Indication: CHOLANGIOCARCINOMA
     Dosage: 180 MG MILLIGRAM(S), CYCLICAL?(NOT OTHERWISE SPECIFIED)
     Route: 042
     Dates: start: 20120903, end: 20130308

REACTIONS (5)
  - Dyspnoea [None]
  - Hypotension [None]
  - Oxygen saturation decreased [None]
  - Hypersensitivity [None]
  - Loss of consciousness [None]

NARRATIVE: CASE EVENT DATE: 20130308
